FAERS Safety Report 5036301-6 (Version None)
Quarter: 2006Q2

REPORT INFORMATION
  Report Type: 
  Country: None (occurrence: None)
  Receive Date: 20060601
  Receipt Date: 20060425
  Transmission Date: 20061013
  Serious: No
  Sender: FDA-Public Use
  Company Number: US200604004297

PATIENT
  Sex: Male

DRUGS (11)
  1. CYMBALTA [Suspect]
     Indication: THINKING ABNORMAL
     Dosage: SEE IMAGE
     Route: 048
     Dates: start: 20060101, end: 20060101
  2. CYMBALTA [Suspect]
     Indication: THINKING ABNORMAL
     Dosage: SEE IMAGE
     Route: 048
     Dates: start: 20060101, end: 20060101
  3. CYMBALTA [Suspect]
     Indication: THINKING ABNORMAL
     Dosage: SEE IMAGE
     Route: 048
     Dates: start: 20060126, end: 20060101
  4. CYMBALTA [Suspect]
     Indication: THINKING ABNORMAL
     Dosage: SEE IMAGE
     Route: 048
     Dates: start: 20060101
  5. PROZAC [Suspect]
     Indication: ANXIETY
     Dosage: ORAL
     Route: 048
     Dates: start: 20020924
  6. ATENOLOL [Concomitant]
  7. LISIPRIL (LISINOPRIL) [Concomitant]
  8. HYDROCHLOROTHIAZIDE [Concomitant]
  9. NORVASC [Concomitant]
  10. NEXIUM [Concomitant]
  11. POTASSIUM (POTASSIUM) [Concomitant]

REACTIONS (3)
  - DRUG EFFECT DECREASED [None]
  - DRUG INEFFECTIVE [None]
  - TREMOR [None]
